FAERS Safety Report 7428547-4 (Version None)
Quarter: 2011Q2

REPORT INFORMATION
  Report Type: 
  Country: None (occurrence: None)
  Receive Date: 20110412
  Receipt Date: 20110405
  Transmission Date: 20111010
  Serious: Yes (Hospitalization, Other)
  Sender: FDA-Public Use
  Company Number: 2009SP017305

PATIENT
  Age: 31 Year
  Sex: Female
  Weight: 84.8226 kg

DRUGS (3)
  1. TOPROL-XL [Concomitant]
  2. RESTORIL [Concomitant]
  3. NUVARING [Suspect]
     Indication: CONTRACEPTION
     Dosage: 1 DF
     Dates: start: 20060401, end: 20061101

REACTIONS (15)
  - WEIGHT DECREASED [None]
  - ROAD TRAFFIC ACCIDENT [None]
  - HYPERTENSION [None]
  - SUBARACHNOID HAEMORRHAGE [None]
  - HIGH DENSITY LIPOPROTEIN INCREASED [None]
  - MUSCLE STRAIN [None]
  - CHEST PAIN [None]
  - INTRACRANIAL VENOUS SINUS THROMBOSIS [None]
  - DRUG INTOLERANCE [None]
  - PELVIC PAIN [None]
  - HYPERCOAGULATION [None]
  - ANOVULATORY CYCLE [None]
  - BLOOD POTASSIUM DECREASED [None]
  - OVARIAN CYST [None]
  - TRANSVERSE SINUS THROMBOSIS [None]
